FAERS Safety Report 7165899-7 (Version None)
Quarter: 2010Q4

REPORT INFORMATION
  Report Type: 
  Country: None (occurrence: None)
  Receive Date: 20101216
  Receipt Date: 20101207
  Transmission Date: 20110411
  Serious: Yes (Other)
  Sender: FDA-Public Use
  Company Number: BE-BIOGENIDEC-2010BI041520

PATIENT
  Age: 25 Year
  Sex: Female

DRUGS (5)
  1. TYSABRI [Suspect]
     Indication: RELAPSING-REMITTING MULTIPLE SCLEROSIS
     Route: 042
     Dates: start: 20090401, end: 20100801
  2. ESTIVAN [Concomitant]
     Indication: MULTIPLE ALLERGIES
  3. XANAX [Concomitant]
  4. SPIRULINA [Concomitant]
  5. FOLIC ACID [Concomitant]

REACTIONS (1)
  - ANAEMIA [None]
